FAERS Safety Report 21423927 (Version 1)
Quarter: 2022Q4

REPORT INFORMATION
  Report Type: Report from Study
  Country: JP (occurrence: JP)
  Receive Date: 20221007
  Receipt Date: 20221007
  Transmission Date: 20230113
  Serious: Yes (Death)
  Sender: FDA-Public Use
  Company Number: JP-ABBVIE-4144005

PATIENT
  Sex: Male

DRUGS (1)
  1. GLECAPREVIR\PIBRENTASVIR [Suspect]
     Active Substance: GLECAPREVIR\PIBRENTASVIR
     Indication: Product used for unknown indication
     Route: 048

REACTIONS (1)
  - Death [Fatal]
